FAERS Safety Report 9753136 (Version 2)
Quarter: 2015Q3

REPORT INFORMATION
  Report Type: Spontaneous
  Country: US (occurrence: US)
  Receive Date: 20131213
  Receipt Date: 20150805
  Transmission Date: 20151125
  Serious: No
  Sender: FDA-Public Use
  Company Number: US-GILEAD-2010-0026450

PATIENT
  Age: 69 Year
  Sex: Male

DRUGS (15)
  1. LYRICA [Concomitant]
     Active Substance: PREGABALIN
  2. B-D INSULIN [Concomitant]
  3. ADVAIR 250-50 DISKUS [Concomitant]
  4. SPIRIVA [Concomitant]
     Active Substance: TIOTROPIUM BROMIDE MONOHYDRATE
  5. LETAIRIS [Suspect]
     Active Substance: AMBRISENTAN
     Indication: PULMONARY ARTERIAL HYPERTENSION
     Route: 048
     Dates: start: 20090710
  6. IPRATROPIUM [Concomitant]
     Active Substance: IPRATROPIUM
  7. CLARINEX [Concomitant]
     Active Substance: DESLORATADINE
  8. WARFARIN SODIUM. [Concomitant]
     Active Substance: WARFARIN SODIUM
  9. PARACETAMOL/HYDROCODONE BITARTRATE [Concomitant]
  10. DIALYVITE 800 ZINC 15 [Concomitant]
  11. NASONEX [Concomitant]
     Active Substance: MOMETASONE FUROATE
  12. ACIPHEN [Concomitant]
  13. RENAL GEL [Concomitant]
  14. LORAZEPAM. [Concomitant]
     Active Substance: LORAZEPAM
  15. ALLOPURINOL. [Concomitant]
     Active Substance: ALLOPURINOL

REACTIONS (2)
  - Asthenia [Unknown]
  - Muscular weakness [Unknown]
